FAERS Safety Report 25319366 (Version 1)
Quarter: 2025Q2

REPORT INFORMATION
  Report Type: Spontaneous
  Country: US (occurrence: None)
  Receive Date: 20250515
  Receipt Date: 20250515
  Transmission Date: 20250717
  Serious: Yes (Hospitalization)
  Sender: FDA-CTU
  Company Number: None

PATIENT
  Age: 81 Year
  Sex: Male

DRUGS (9)
  1. LENALIDOMIDE [Suspect]
     Active Substance: LENALIDOMIDE
     Indication: Plasma cell myeloma
     Route: 048
     Dates: start: 20250218
  2. ACYCLOVIR [Suspect]
     Active Substance: ACYCLOVIR
  3. CENTRUM  CHW SILVER [Concomitant]
  4. DEXAMETHASONE [Concomitant]
     Active Substance: DEXAMETHASONE
  5. GABAPENTIN [Concomitant]
     Active Substance: GABAPENTIN
  6. LENALIDOMIDE [Concomitant]
     Active Substance: LENALIDOMIDE
  7. MIRTAZAPINE [Concomitant]
     Active Substance: MIRTAZAPINE
  8. PANTOPRAZOLE [Concomitant]
     Active Substance: PANTOPRAZOLE
  9. VELCADE [Concomitant]
     Active Substance: BORTEZOMIB

REACTIONS (1)
  - Type 2 diabetes mellitus [None]

NARRATIVE: CASE EVENT DATE: 20250501
